FAERS Safety Report 24354002 (Version 4)
Quarter: 2024Q4

REPORT INFORMATION
  Report Type: Report from Study
  Country: US (occurrence: US)
  Receive Date: 20240923
  Receipt Date: 20241230
  Transmission Date: 20250115
  Serious: Yes (Other)
  Sender: ABBVIE
  Company Number: US-ABBVIE-5931393

PATIENT
  Age: 68 Year
  Sex: Male
  Weight: 116.57 kg

DRUGS (18)
  1. SKYRIZI [Suspect]
     Active Substance: RISANKIZUMAB-RZAA
     Indication: Psoriasis
     Route: 058
     Dates: start: 20191213, end: 20240206
  2. SKYRIZI [Suspect]
     Active Substance: RISANKIZUMAB-RZAA
     Route: 058
  3. SKYRIZI [Suspect]
     Active Substance: RISANKIZUMAB-RZAA
     Route: 058
     Dates: start: 20190821
  4. SKYRIZI [Suspect]
     Active Substance: RISANKIZUMAB-RZAA
     Route: 058
     Dates: start: 201909
  5. ASPIRIN [Concomitant]
     Active Substance: ASPIRIN
     Indication: Atrial fibrillation
     Dosage: DOSAGE: {DF} LOW DOSE
  6. ASPIRIN [Concomitant]
     Active Substance: ASPIRIN
     Indication: Atrial fibrillation
     Dosage: LOW DOSE
  7. ALDACTONE [Concomitant]
     Active Substance: SPIRONOLACTONE
     Indication: Atrial fibrillation
     Dosage: TAKE 0.5 TABLETS BY MOUTH IN THE MORNING.
     Route: 048
  8. FUROSEMIDE [Concomitant]
     Active Substance: FUROSEMIDE
     Indication: Oedema
     Dosage: DOSAGE: {DF}
  9. ELIQUIS [Concomitant]
     Active Substance: APIXABAN
     Indication: Atrial fibrillation
     Route: 048
  10. ATORVASTATIN [Concomitant]
     Active Substance: ATORVASTATIN
     Indication: Hyperlipidaemia
     Dosage: DOSAGE: {DF}
  11. AMIODARONE [Concomitant]
     Active Substance: AMIODARONE
     Indication: Atrial fibrillation
     Dosage: DOSAGE: {DF}
  12. POTASSIUM [Concomitant]
     Active Substance: POTASSIUM
     Indication: Atrial fibrillation
     Dosage: 1 TABLET BEFORE BEDTIME
     Route: 048
  13. TYLENOL [Concomitant]
     Active Substance: ACETAMINOPHEN
     Indication: Pyrexia
     Dosage: TIME INTERVAL: AS NECESSARY: TAKE 2 TABLETS BY MOUTH 3 TIMES A DAY
     Route: 048
  14. ASPIRIN [Concomitant]
     Active Substance: ASPIRIN
     Indication: Product used for unknown indication
     Route: 048
  15. DEMADEX [Concomitant]
     Active Substance: TORSEMIDE
     Indication: Product used for unknown indication
     Dosage: TAKE TWO TABLET BY MOUTH IN MORNING
     Route: 048
  16. LIPITOR [Concomitant]
     Active Substance: ATORVASTATIN CALCIUM
     Indication: Product used for unknown indication
     Dosage: AT AFTERNOON
     Route: 048
  17. SODIUM FLUORIDE 5000 PPM SENSITIVE [Concomitant]
     Active Substance: POTASSIUM NITRATE\SODIUM FLUORIDE
     Indication: Product used for unknown indication
     Dosage: 1.1% DENTAL PASTE, BRUSH TEETH FOR 2 MINUTES THEN EXPECTORATE BUT DO NOT RINSE, DO N... (REFER TO...
  18. CORDARONE [Concomitant]
     Active Substance: AMIODARONE HYDROCHLORIDE
     Indication: Product used for unknown indication
     Dosage: TAKE ONE TAB TWICE DAILY X 2 WEEKS, THEN TAKE ONE TAB DAILY
     Route: 048

REACTIONS (18)
  - Tonsil cancer [Recovered/Resolved]
  - Oropharyngeal pain [Recovered/Resolved]
  - Ischaemic cardiomyopathy [Unknown]
  - Cerebral ischaemia [Unknown]
  - Oropharyngeal cancer [Unknown]
  - Neutropenia [Unknown]
  - Malnutrition [Unknown]
  - Atrial fibrillation [Unknown]
  - Acute kidney injury [Unknown]
  - Vomiting [Unknown]
  - Angina unstable [Unknown]
  - Acute myocardial infarction [Unknown]
  - Tobacco use disorder [Unknown]
  - Atrial flutter [Unknown]
  - Hypernatraemia [Unknown]
  - Decreased appetite [Unknown]
  - Nausea [Unknown]
  - Mucosal inflammation [Unknown]

NARRATIVE: CASE EVENT DATE: 20240101
